FAERS Safety Report 9962651 (Version 1)
Quarter: 2014Q1

REPORT INFORMATION
  Report Type: Report from Study
  Country: US (occurrence: US)
  Receive Date: 20140305
  Receipt Date: 20140305
  Transmission Date: 20141002
  Serious: No
  Sender: FDA-Public Use
  Company Number: US-ABBVIE-13P-163-1112990-00

PATIENT
  Age: 46 Year
  Sex: Female
  Weight: 68.1 kg

DRUGS (6)
  1. HUMIRA [Suspect]
     Indication: RHEUMATOID ARTHRITIS
     Dates: start: 2008
  2. ADVAIR [Concomitant]
     Indication: RHEUMATOID LUNG
  3. ALBUTEROL [Concomitant]
     Indication: RHEUMATOID LUNG
  4. ZITHROMYCIN [Concomitant]
     Indication: RHEUMATOID LUNG
  5. SINGULAIR [Concomitant]
     Indication: RHEUMATOID LUNG
  6. NAPROXEN [Concomitant]
     Indication: RHEUMATOID ARTHRITIS

REACTIONS (2)
  - Herpes zoster [Recovered/Resolved]
  - Staphylococcal infection [Recovered/Resolved]
